FAERS Safety Report 13375819 (Version 1)
Quarter: 2017Q1

REPORT INFORMATION
  Report Type: Spontaneous
  Country: FR (occurrence: FR)
  Receive Date: 20170328
  Receipt Date: 20170328
  Transmission Date: 20170429
  Serious: Yes (Death)
  Sender: FDA-Public Use
  Company Number: FR-ROCHE-1910271

PATIENT
  Age: 34 Year
  Sex: Female

DRUGS (17)
  1. CALCIPARINE [Concomitant]
     Active Substance: HEPARIN CALCIUM
  2. SPIRAMYCIN [Concomitant]
     Active Substance: SPIRAMYCIN
     Route: 065
     Dates: start: 20170211, end: 20170216
  3. IMIPENEM CILASTATINE MYLAN [Suspect]
     Active Substance: IMIPENEM
     Indication: PRODUCT USED FOR UNKNOWN INDICATION
     Dosage: 500 MG/ 500 MG
     Route: 042
     Dates: start: 20170211, end: 20170223
  4. LINEZOLIDE [Suspect]
     Active Substance: LINEZOLID
     Dosage: LINEZOLIDE KABI 600 MG
     Route: 065
     Dates: start: 20170304
  5. CYTARABINE. [Concomitant]
     Active Substance: CYTARABINE
     Dosage: DAY 1 AND DAY 2 THE NEXT DAY
     Route: 065
     Dates: start: 20170123
  6. CYMEVAN [Suspect]
     Active Substance: GANCICLOVIR
     Dosage: SECOND COURSE, LYOPHILISATE FOR PARENTERAL USE (INFUSION)
     Route: 042
     Dates: start: 20170220, end: 20170224
  7. CEFEPIME [Concomitant]
     Active Substance: CEFEPIME HYDROCHLORIDE
     Route: 065
     Dates: start: 20170211
  8. BACTRIM [Suspect]
     Active Substance: SULFAMETHOXAZOLE\TRIMETHOPRIM
     Indication: PRODUCT USED FOR UNKNOWN INDICATION
     Route: 042
     Dates: start: 20170211, end: 20170301
  9. CYMEVAN [Suspect]
     Active Substance: GANCICLOVIR
     Indication: PRODUCT USED FOR UNKNOWN INDICATION
     Dosage: FIRST COURSE, LYOPHILISATE FOR PARENTERAL USE (INFUSION)
     Route: 042
     Dates: start: 20170214, end: 20170218
  10. PLAQUENIL [Concomitant]
     Active Substance: HYDROXYCHLOROQUINE SULFATE
  11. CYMEVAN [Suspect]
     Active Substance: GANCICLOVIR
     Dosage: THIRD COURSE, LYOPHILISATE FOR PARENTERAL USE (INFUSION)
     Route: 042
     Dates: start: 20170228, end: 20170303
  12. CANCIDAS [Concomitant]
     Active Substance: CASPOFUNGIN ACETATE
     Route: 065
     Dates: start: 20170213, end: 20170214
  13. IMIPENEM CILASTATINE MYLAN [Suspect]
     Active Substance: IMIPENEM
     Route: 065
     Dates: start: 20170304
  14. LINEZOLIDE [Suspect]
     Active Substance: LINEZOLID
     Indication: PRODUCT USED FOR UNKNOWN INDICATION
     Dosage: LINEZOLIDE KABI 600 MG
     Route: 048
     Dates: start: 20170211, end: 20170224
  15. SOLU-MEDROL [Concomitant]
     Active Substance: METHYLPREDNISOLONE SODIUM SUCCINATE
     Indication: SEPSIS
     Route: 065
     Dates: start: 20170121
  16. AMIKACIN [Concomitant]
     Active Substance: AMIKACIN
     Route: 065
     Dates: start: 20170211
  17. OSELTAMIVIR [Concomitant]
     Active Substance: OSELTAMIVIR
     Route: 065
     Dates: start: 20170211, end: 20170214

REACTIONS (1)
  - Agranulocytosis [Fatal]

NARRATIVE: CASE EVENT DATE: 20170303
